FAERS Safety Report 6692410-7 (Version None)
Quarter: 2010Q2

REPORT INFORMATION
  Report Type: 
  Country: None (occurrence: None)
  Receive Date: 20100422
  Receipt Date: 20100412
  Transmission Date: 20101027
  Serious: Yes (Life-Threatening, Hospitalization)
  Sender: FDA-Public Use
  Company Number: GXKR2010GB04137

PATIENT
  Sex: Male
  Weight: 2.5 kg

DRUGS (2)
  1. ACETAMINOPHEN AND CODEINE PHOSPHATE [Suspect]
     Dosage: MATERNAL DOSE: AT LEAST 90 MG CODEINE/DAY
     Route: 064
  2. DEXTROSE [Concomitant]
     Indication: RESPIRATION ABNORMAL
     Dosage: CONTINUOUS

REACTIONS (17)
  - APNOEA [None]
  - CONVULSION [None]
  - DIARRHOEA [None]
  - DRUG EXPOSURE DURING PREGNANCY [None]
  - DRUG WITHDRAWAL SYNDROME NEONATAL [None]
  - FEEDING DISORDER [None]
  - GASTROINTESTINAL TUBE INSERTION [None]
  - GRUNTING [None]
  - HEART RATE DECREASED [None]
  - HYPERTONIA [None]
  - IRRITABILITY [None]
  - NEONATAL DISORDER [None]
  - OXYGEN SATURATION ABNORMAL [None]
  - PYREXIA [None]
  - RESTLESSNESS [None]
  - TACHYPNOEA [None]
  - TREMOR [None]
